FAERS Safety Report 15440266 (Version 1)
Quarter: 2018Q3

REPORT INFORMATION
  Report Type: Spontaneous
  Country: US (occurrence: US)
  Receive Date: 20180925
  Receipt Date: 20180925
  Transmission Date: 20181010
  Serious: Yes (Disabling)
  Sender: FDA-Public Use
  Company Number: None

PATIENT
  Age: 71 Year
  Sex: Female
  Weight: 58.97 kg

DRUGS (14)
  1. SPIRIVA [Concomitant]
     Active Substance: TIOTROPIUM BROMIDE MONOHYDRATE
  2. CLORIDINE [Concomitant]
  3. AMITIZA [Concomitant]
     Active Substance: LUBIPROSTONE
  4. IMDYR [Concomitant]
  5. VITAMIN [Concomitant]
     Active Substance: VITAMINS
  6. TYLENOL [Concomitant]
     Active Substance: ACETAMINOPHEN
  7. ADVAIR HFA [Concomitant]
     Active Substance: FLUTICASONE PROPIONATE\SALMETEROL XINAFOATE
  8. DIAZAPAM [Concomitant]
     Active Substance: DIAZEPAM
  9. CRESTOR [Concomitant]
     Active Substance: ROSUVASTATIN CALCIUM
  10. 81 ASPIRIN [Concomitant]
  11. RANEXA [Suspect]
     Active Substance: RANOLAZINE
     Indication: ANGINA PECTORIS
     Dosage: ?          QUANTITY:1 TAB;?
     Route: 048
     Dates: start: 20180824, end: 20180830
  12. BACLOFEN. [Concomitant]
     Active Substance: BACLOFEN
  13. PANTAPRAZOLE [Concomitant]
     Active Substance: PANTOPRAZOLE SODIUM
  14. BENADRYL [Concomitant]
     Active Substance: DIPHENHYDRAMINE HYDROCHLORIDE

REACTIONS (5)
  - Dry mouth [None]
  - Blood urine present [None]
  - Constipation [None]
  - Vision blurred [None]
  - Arrhythmia [None]

NARRATIVE: CASE EVENT DATE: 20180830
